FAERS Safety Report 7763114 (Version 6)
Quarter: 2013Q2

REPORT INFORMATION
  Report Type: Spontaneous
  Country: US (occurrence: US)
  Receive Date: 20110118
  Receipt Date: 20130403
  Transmission Date: 20140414
  Serious: Yes (Hospitalization)
  Sender: FDA-Public Use
  Company Number: US-BAYER-2011-004956

PATIENT
  Age: 43 Year
  Sex: Female
  Weight: 90.7 kg

DRUGS (12)
  1. YAZ [Suspect]
     Indication: PREMENSTRUAL DYSPHORIC DISORDER
     Dosage: UNK
     Dates: start: 200801, end: 20090115
  2. YAZ [Suspect]
     Indication: PREMENSTRUAL SYNDROME
  3. IBUPROFEN [Concomitant]
     Dosage: UNK
     Dates: start: 2008, end: 2009
  4. METOPROLOL [Concomitant]
     Indication: HYPERTENSION
  5. METOPROLOL [Concomitant]
     Indication: MIGRAINE
  6. SYNTHROID [Concomitant]
     Indication: THYROID DISORDER
  7. FLUOXETINE [Concomitant]
     Dosage: 40 MG, UNK
  8. SEROQUEL [Concomitant]
  9. XANAX [Concomitant]
     Dosage: 1 MG, UNK
  10. PROTONIX [Concomitant]
     Dosage: 40 MG, QD
  11. CHLORDIAZEPOXIDE W/CLIDINIUM [Concomitant]
     Dosage: 5/2.5 MG QD
  12. TRIAMTERENE AND HYDROCHLOROTHIAZIDE [Concomitant]

REACTIONS (6)
  - Cholecystitis [None]
  - Cholecystectomy [None]
  - Thrombophlebitis superficial [None]
  - Thrombosis [None]
  - Pain [None]
  - Off label use [None]
